FAERS Safety Report 14955069 (Version 1)
Quarter: 2018Q2

REPORT INFORMATION
  Report Type: Spontaneous
  Country: DE (occurrence: DE)
  Receive Date: 20180531
  Receipt Date: 20180531
  Transmission Date: 20180711
  Serious: Yes (Hospitalization)
  Sender: FDA-Public Use
  Company Number: DE-CONCORDIA PHARMACEUTICALS INC.-E2B_00011982

PATIENT
  Age: 73 Year
  Sex: Female

DRUGS (7)
  1. TORASEMID [Concomitant]
     Active Substance: TORSEMIDE
     Dosage: 10 MG, 1-1-0-0
  2. METAMIZOL [Concomitant]
     Active Substance: METAMIZOLE SODIUM
     Dosage: NK MG, 30-30-30-30, TROPFEN
  3. MESTINON [Concomitant]
     Active Substance: PYRIDOSTIGMINE BROMIDE
     Dosage: 10 MG, 3-3-3-0
  4. MESTINON 60 [Concomitant]
     Dosage: 60 MG, 1-1-1-0
  5. PREDNISOLONE. [Suspect]
     Active Substance: PREDNISOLONE
     Dosage: 5 MG, 6-0-0-0
  6. MESTINON RETARD 180MG [Concomitant]
     Dosage: 180 MG, 0-0-0-1
  7. TARGIN 10MG/5MG [Concomitant]
     Dosage: 10|5 MG, 1-1-1-1

REACTIONS (3)
  - Fall [Unknown]
  - Pain [Unknown]
  - Fracture [Unknown]
